FAERS Safety Report 18262206 (Version 1)
Quarter: 2020Q3

REPORT INFORMATION
  Report Type: Spontaneous
  Country: US (occurrence: US)
  Receive Date: 20200913
  Receipt Date: 20200913
  Transmission Date: 20201103
  Serious: Yes (Life-Threatening, Disabling)
  Sender: FDA-Public Use
  Company Number: None

PATIENT
  Age: 59 Year
  Sex: Male

DRUGS (1)
  1. LOSARTAN?HCTZ 100?12.5 MG TAB [Suspect]
     Active Substance: HYDROCHLOROTHIAZIDE\LOSARTAN
     Dosage: ?          QUANTITY:90 TABLET(S);?
     Route: 048

REACTIONS (6)
  - Hypertension [None]
  - Manufacturing issue [None]
  - Blood calcium increased [None]
  - Pharyngeal swelling [None]
  - Chest pain [None]
  - Goitre [None]
